FAERS Safety Report 11688747 (Version 2)
Quarter: 2015Q4

REPORT INFORMATION
  Report Type: Spontaneous
  Country: US (occurrence: US)
  Receive Date: 20151102
  Receipt Date: 20151230
  Transmission Date: 20160304
  Serious: No
  Sender: FDA-Public Use
  Company Number: US-LEO PHARMA-237885

PATIENT
  Sex: Female

DRUGS (1)
  1. PICATO [Suspect]
     Active Substance: INGENOL MEBUTATE
     Indication: PRECANCEROUS SKIN LESION
     Route: 061
     Dates: start: 20151020

REACTIONS (5)
  - Application site swelling [Recovered/Resolved]
  - Application site exfoliation [Recovered/Resolved]
  - Drug administered at inappropriate site [Unknown]
  - Application site vesicles [Recovered/Resolved]
  - Application site erythema [Recovered/Resolved]

NARRATIVE: CASE EVENT DATE: 20151021
